FAERS Safety Report 5627811-9 (Version None)
Quarter: 2008Q1

REPORT INFORMATION
  Report Type: 
  Country: None (occurrence: None)
  Receive Date: 20080215
  Receipt Date: 20080207
  Transmission Date: 20080703
  Serious: Yes (Other)
  Sender: FDA-Public Use
  Company Number: US-JNJFOC-20080202270

PATIENT
  Sex: Female

DRUGS (11)
  1. REMICADE [Suspect]
     Indication: RHEUMATOID ARTHRITIS
     Route: 042
  2. ASPIRIN [Concomitant]
  3. BYETTA [Concomitant]
     Dosage: 10 MCG
  4. FLUOXETINE HCL [Concomitant]
  5. LASIX [Concomitant]
  6. GLYBURIDE [Concomitant]
  7. METFORMIN HCL [Concomitant]
  8. PREMARIN [Concomitant]
  9. LORATADINE [Concomitant]
  10. OXYBUTYNIN CHLORIDE [Concomitant]
  11. TYLENOL (CAPLET) [Concomitant]

REACTIONS (1)
  - LUNG NEOPLASM MALIGNANT [None]
